FAERS Safety Report 26108676 (Version 3)
Quarter: 2025Q4

REPORT INFORMATION
  Report Type: Spontaneous
  Country: EU (occurrence: None)
  Receive Date: 20251201
  Receipt Date: 20251210
  Transmission Date: 20260118
  Serious: Yes (Death, Life-Threatening, Other)
  Sender: ORGANON
  Company Number: None

PATIENT
  Age: 24 Year
  Sex: Male
  Weight: 75 kg

DRUGS (1)
  1. PROPECIA [Suspect]
     Active Substance: FINASTERIDE
     Indication: Androgenetic alopecia
     Dosage: 1D1T
     Dates: start: 20220627, end: 20240615

REACTIONS (3)
  - Completed suicide [Fatal]
  - Suicidal ideation [Unknown]
  - Depression [Unknown]

NARRATIVE: CASE EVENT DATE: 20250801
